FAERS Safety Report 10246236 (Version 2)
Quarter: 2014Q3

REPORT INFORMATION
  Report Type: Report from Study
  Country: JP (occurrence: JP)
  Receive Date: 20140619
  Receipt Date: 20140825
  Transmission Date: 20150326
  Serious: Yes (Hospitalization)
  Sender: FDA-Public Use
  Company Number: PHHY2014JP073840

PATIENT
  Age: 64 Year
  Sex: Male

DRUGS (5)
  1. AFINITOR [Suspect]
     Active Substance: EVEROLIMUS
     Dosage: 5 MG, DAILY
     Route: 048
     Dates: start: 20130327, end: 20131223
  2. AFINITOR [Suspect]
     Active Substance: EVEROLIMUS
     Dosage: 5 MG, DAILY
     Route: 048
     Dates: start: 20120801, end: 20130306
  3. AFINITOR [Suspect]
     Active Substance: EVEROLIMUS
     Indication: PANCREATIC NEUROENDOCRINE TUMOUR
     Dosage: 10 MG, DAILY
     Route: 048
     Dates: start: 20120425, end: 20120711
  4. ARGAMATE [Concomitant]
     Active Substance: POLYSTYRENE
     Indication: PROPHYLAXIS
     Dosage: 3 DF
     Route: 048
     Dates: start: 20121002, end: 20130409
  5. AFINITOR [Suspect]
     Active Substance: EVEROLIMUS
     Dosage: 5 MG, DAILY
     Route: 048
     Dates: start: 20140301

REACTIONS (10)
  - Back pain [Unknown]
  - C-reactive protein abnormal [Unknown]
  - Spondylitis [Recovered/Resolved]
  - Pain [Unknown]
  - Cellulitis [Recovered/Resolved]
  - Streptococcal infection [Recovered/Resolved]
  - Sepsis [Recovered/Resolved]
  - Erythema [Unknown]
  - Purulence [Unknown]
  - Pyrexia [Unknown]

NARRATIVE: CASE EVENT DATE: 20131223
